FAERS Safety Report 8559650-3 (Version None)
Quarter: 2012Q3

REPORT INFORMATION
  Report Type: 
  Country: None (occurrence: None)
  Receive Date: 20120802
  Receipt Date: 20120730
  Transmission Date: 20120928
  Serious: Yes (Hospitalization)
  Sender: FDA-Public Use
  Company Number: US-BAYER-2012-068935

PATIENT
  Age: 61 Year
  Sex: Male
  Weight: 122.45 kg

DRUGS (12)
  1. VITAMIN D [Concomitant]
  2. BUPROPION HCL [Concomitant]
     Dosage: 300 MG, QD
  3. DRUGS FOR PEPTIC ULCER AND GORD [Concomitant]
  4. IRON [Concomitant]
  5. ALIMENTARY TRACT AND METABOLISM [Concomitant]
  6. ANTIHYPERTENSIVES [Concomitant]
  7. MERCAPTOPURINE [Concomitant]
     Dosage: 50 MG, QD
  8. OMEPRAZOLE [Concomitant]
     Dosage: 25 MG, QD
  9. LEVITRA [Suspect]
     Indication: ERECTILE DYSFUNCTION
     Dosage: 20 MG, ONCE (1 TABLET AT NIGHT)
     Route: 048
  10. ASACOL [Concomitant]
     Dosage: 400 MG, 8 A DAY
  11. CHOLESTEROL- AND TRIGLYCERIDE REDUCERS [Concomitant]
  12. HYDROCHLOROTHIAZIDE [Concomitant]
     Dosage: 25 MG, QD

REACTIONS (1)
  - SMALL INTESTINAL OBSTRUCTION [None]
